FAERS Safety Report 23293051 (Version 1)
Quarter: 2023Q4

REPORT INFORMATION
  Report Type: Spontaneous
  Country: FR (occurrence: FR)
  Receive Date: 20231213
  Receipt Date: 20231213
  Transmission Date: 20240110
  Serious: Yes (Other)
  Sender: FDA-Public Use
  Company Number: FR-PAION-PA2023FR000140

PATIENT
  Age: 21 Year
  Sex: Male

DRUGS (6)
  1. AMPICILLIN SODIUM\SULBACTAM SODIUM [Suspect]
     Active Substance: AMPICILLIN SODIUM\SULBACTAM SODIUM
     Indication: Pneumonia acinetobacter
     Dosage: 9 G, 3X/DAY (EVERY 8 HOURS)
     Route: 065
  2. COLISTIN [Suspect]
     Active Substance: COLISTIN
     Indication: Pneumonia acinetobacter
     Dosage: 3 *10*6.IU, 3X/DAY (EVERY 8 HOURS)
     Route: 065
  3. XERAVA [Suspect]
     Active Substance: ERAVACYCLINE DIHYDROCHLORIDE
     Indication: Pneumonia acinetobacter
     Dosage: 50 MG, 2X/DAY
     Route: 042
     Dates: start: 202311, end: 202311
  4. CEFIDEROCOL [Suspect]
     Active Substance: CEFIDEROCOL
     Indication: Pneumonia acinetobacter
     Dosage: 2 G, 3X/DAY (EVERY 8 HOURS)
     Route: 065
  5. TIGECYCLINE [Concomitant]
     Active Substance: TIGECYCLINE
     Indication: Pneumonia acinetobacter
     Dosage: 200 MG
     Route: 065
  6. TIGECYCLINE [Concomitant]
     Active Substance: TIGECYCLINE
     Dosage: 100 MG, 2X/DAY
     Route: 065

REACTIONS (2)
  - Renal impairment [Unknown]
  - Off label use [Unknown]

NARRATIVE: CASE EVENT DATE: 20231101
